FAERS Safety Report 7494109-6 (Version None)
Quarter: 2011Q2

REPORT INFORMATION
  Report Type: 
  Country: None (occurrence: None)
  Receive Date: 20110520
  Receipt Date: 20110509
  Transmission Date: 20111010
  Serious: Yes (Hospitalization)
  Sender: FDA-Public Use
  Company Number: CA-JNJFOC-20110504640

PATIENT
  Sex: Female
  Weight: 47.7 kg

DRUGS (5)
  1. REMICADE [Suspect]
     Indication: RHEUMATOID ARTHRITIS
     Route: 042
     Dates: start: 20090623
  2. LYRICA [Concomitant]
  3. INDOMETHACIN [Concomitant]
  4. RABEPRAZOLE SODIUM [Concomitant]
  5. BACLOFEN [Concomitant]

REACTIONS (1)
  - JOINT ARTHROPLASTY [None]
